FAERS Safety Report 12930486 (Version 1)
Quarter: 2016Q4

REPORT INFORMATION
  Report Type: Spontaneous
  Country: US (occurrence: US)
  Receive Date: 20161111
  Receipt Date: 20161111
  Transmission Date: 20170207
  Serious: No
  Sender: FDA-Public Use
  Company Number: None

PATIENT

DRUGS (2)
  1. ADRENALIN [Suspect]
     Active Substance: EPINEPHRINE
     Dosage: INJECTABLE; IM OR SUBCUTANEOUS; 1 MG/ML; MULTIPLE DOSE VIAL; 30 ML
     Route: 030
  2. ADRENALIN CHLORIDE SOLUTION EPINEPHRINE CHLORIDE [Suspect]
     Active Substance: EPINEPHRINE
     Dosage: SOLUTION; NASAL; 1 MG/ML; VIAL; 30 ML

REACTIONS (2)
  - Product packaging confusion [None]
  - Product label confusion [None]
